FAERS Safety Report 6295552-3 (Version None)
Quarter: 2009Q3

REPORT INFORMATION
  Report Type: 
  Country: None (occurrence: None)
  Receive Date: 20090731
  Receipt Date: 20090721
  Transmission Date: 20100115
  Serious: Yes (Hospitalization)
  Sender: FDA-Public Use
  Company Number: 2009-02916

PATIENT
  Age: 60 Year
  Sex: Female
  Weight: 63.3 kg

DRUGS (12)
  1. VELCADE [Suspect]
     Indication: MULTIPLE MYELOMA
     Dosage: 1.3 MGM2; 1.3 MG/M2
     Dates: start: 20050517, end: 20051020
  2. VELCADE [Suspect]
     Indication: MULTIPLE MYELOMA
     Dosage: 1.3 MGM2; 1.3 MG/M2
     Dates: start: 20060626
  3. VELCADE [Suspect]
     Indication: MULTIPLE MYELOMA
     Dosage: 1.3 MGM2; 1.3 MG/M2
     Dates: start: 20090421
  4. DEXAMETHASONE TAB [Suspect]
     Indication: MULTIPLE MYELOMA
     Dates: start: 20050517
  5. DEXAMETHASONE TAB [Suspect]
     Indication: MULTIPLE MYELOMA
     Dates: start: 20090421
  6. REVLIMID [Suspect]
     Indication: MULTIPLE MYELOMA
     Dosage: 10 MG, ORAL;
     Route: 048
     Dates: start: 20060726
  7. THALIDOMIDE [Suspect]
     Indication: MULTIPLE MYELOMA
  8. CISPLATIN [Suspect]
     Indication: MULTIPLE MYELOMA
  9. ADRIAMYCIN PFS [Suspect]
     Indication: MULTIPLE MYELOMA
  10. CYCLOPHOSPHAMIDE [Suspect]
     Indication: MULTIPLE MYELOMA
  11. ETOPOSIDE [Suspect]
     Indication: MULTIPLE MYELOMA
  12. VORINOSTAT (SUBEROYLANILIDE HYDROXAMIC ACID) [Suspect]
     Indication: MULTIPLE MYELOMA
     Dates: start: 20090421

REACTIONS (14)
  - DIARRHOEA [None]
  - DISEASE PROGRESSION [None]
  - FATIGUE [None]
  - FEBRILE NEUTROPENIA [None]
  - HYPERMETABOLISM [None]
  - HYPOCALCAEMIA [None]
  - MULTIPLE MYELOMA [None]
  - NAUSEA [None]
  - PAIN [None]
  - PLASMACYTOMA [None]
  - RESPIRATORY SYNCYTIAL VIRUS INFECTION [None]
  - STEM CELL TRANSPLANT [None]
  - VITAMIN D DEFICIENCY [None]
  - VOMITING [None]
